FAERS Safety Report 18004602 (Version 2)
Quarter: 2020Q3

REPORT INFORMATION
  Report Type: Spontaneous
  Country: US (occurrence: US)
  Receive Date: 20200710
  Receipt Date: 20200711
  Transmission Date: 20201103
  Serious: No
  Sender: FDA-Public Use
  Company Number: US-BIOGEN-2019BI00784677

PATIENT
  Age: 58 Year
  Sex: Female

DRUGS (2)
  1. TECFIDERA [Suspect]
     Active Substance: DIMETHYL FUMARATE
     Indication: MULTIPLE SCLEROSIS
     Dosage: STARTING DOSE
     Route: 048
     Dates: start: 20190910, end: 20190916
  2. TECFIDERA [Suspect]
     Active Substance: DIMETHYL FUMARATE
     Dosage: MAINTENANCE DOSE
     Dates: start: 20190917

REACTIONS (16)
  - Amnesia [Not Recovered/Not Resolved]
  - Paraesthesia [Unknown]
  - Hyperhidrosis [Recovered/Resolved]
  - Hot flush [Not Recovered/Not Resolved]
  - Hyperchlorhydria [Unknown]
  - Dysphonia [Unknown]
  - Abdominal distension [Recovered/Resolved]
  - Burning sensation [Not Recovered/Not Resolved]
  - Flatulence [Not Recovered/Not Resolved]
  - Frustration tolerance decreased [Not Recovered/Not Resolved]
  - Flushing [Not Recovered/Not Resolved]
  - Abdominal pain upper [Unknown]
  - Multiple sclerosis relapse [Unknown]
  - Product dose omission issue [Unknown]
  - Hypoaesthesia [Recovered/Resolved]
  - Dizziness [Unknown]

NARRATIVE: CASE EVENT DATE: 20190910
